FAERS Safety Report 6291356-6 (Version None)
Quarter: 2009Q3

REPORT INFORMATION
  Report Type: 
  Country: None (occurrence: None)
  Receive Date: 20090730
  Receipt Date: 20090717
  Transmission Date: 20100115
  Serious: Yes (Other)
  Sender: FDA-Public Use
  Company Number: FR-ELI_LILLY_AND_COMPANY-FR200907003592

PATIENT
  Sex: Female

DRUGS (2)
  1. GEMZAR [Suspect]
     Indication: BREAST CANCER
     Dosage: 1000 MG/M2, UNKNOWN
     Route: 042
     Dates: start: 20080901, end: 20090615
  2. TAXOL [Concomitant]
     Indication: BREAST CANCER
     Dosage: 100 MG/M2, UNKNOWN
     Route: 042
     Dates: start: 20080901, end: 20090615

REACTIONS (1)
  - CYTOLYTIC HEPATITIS [None]
